FAERS Safety Report 15793783 (Version 1)
Quarter: 2018Q4

REPORT INFORMATION
  Report Type: Spontaneous
  Country: US (occurrence: US)
  Receive Date: 20181213
  Receipt Date: 20181213
  Transmission Date: 20190205
  Serious: Yes (Hospitalization)
  Sender: FDA-Public Use
  Company Number: None

PATIENT
  Age: 37 Year
  Sex: Female

DRUGS (14)
  1. CLONAZEPAM. [Concomitant]
     Active Substance: CLONAZEPAM
  2. DIVIGEL [Concomitant]
     Active Substance: ESTRADIOL
  3. HYDROXYZ PAM [Concomitant]
     Active Substance: HYDROXYZINE PAMOATE
  4. TOPIRAMATE. [Concomitant]
     Active Substance: TOPIRAMATE
  5. ASA [Concomitant]
     Active Substance: ASPIRIN
  6. ESTRADIOL. [Concomitant]
     Active Substance: ESTRADIOL
  7. DOK [Concomitant]
     Active Substance: DOCUSATE SODIUM
  8. LEFLUNOIDE [Concomitant]
  9. VUVAFEM [Concomitant]
  10. BUPROPN [Concomitant]
  11. EVAMIST [Concomitant]
     Active Substance: ESTRADIOL
  12. MELOXICAM. [Concomitant]
     Active Substance: MELOXICAM
  13. DEXTROAMPHET SACCHARAT, AMPHET ASPARTATE, DEXTROAMPHET SULFATE AND AMPHET SULFAT [Concomitant]
     Active Substance: AMPHETAMINE ASPARTATE\AMPHETAMINE SULFATE\DEXTROAMPHETAMINE SACCHARATE\DEXTROAMPHETAMINE SULFATE
  14. CIMZIA [Suspect]
     Active Substance: CERTOLIZUMAB PEGOL
     Indication: ANKYLOSING SPONDYLITIS
     Dosage: ?          OTHER DOSE:2 SYR (400MG);?
     Route: 058
     Dates: start: 201709

REACTIONS (2)
  - Therapy cessation [None]
  - Hip surgery [None]

NARRATIVE: CASE EVENT DATE: 201810
